FAERS Safety Report 6671309-6 (Version None)
Quarter: 2010Q2

REPORT INFORMATION
  Report Type: 
  Country: None (occurrence: None)
  Receive Date: 20100407
  Receipt Date: 20100331
  Transmission Date: 20101027
  Serious: Yes (Death)
  Sender: FDA-Public Use
  Company Number: ES-CELGENEUS-144-50794-10040301

PATIENT
  Age: 63 Year
  Sex: Female

DRUGS (2)
  1. VIDAZA [Suspect]
     Route: 050
     Dates: start: 20070101
  2. VIDAZA [Suspect]

REACTIONS (2)
  - ACUTE MYELOID LEUKAEMIA [None]
  - MYELODYSPLASTIC SYNDROME TRANSFORMATION [None]
